FAERS Safety Report 25764563 (Version 1)
Quarter: 2025Q3

REPORT INFORMATION
  Report Type: Spontaneous
  Country: US (occurrence: US)
  Receive Date: 20250905
  Receipt Date: 20250905
  Transmission Date: 20251021
  Serious: No
  Sender: DOMPE FARMACEUTICI
  Company Number: US-FARMAPROD-202501-0177

PATIENT
  Sex: Female
  Weight: 68.95 kg

DRUGS (22)
  1. OXERVATE [Suspect]
     Active Substance: CENEGERMIN-BKBJ
     Indication: Neurotrophic keratopathy
     Route: 047
     Dates: start: 20241219
  2. SYSTANE (HYPROMELLOSE 2910 (4000 MPA.S)) [Concomitant]
     Active Substance: HYPROMELLOSE 2910 (4000 MPA.S)
  3. MEIBO [Concomitant]
  4. VEVYE [Concomitant]
     Active Substance: CYCLOSPORINE
  5. CEQUA [Concomitant]
     Active Substance: CYCLOSPORINE
  6. DOXEPIN HYDROCHLORIDE [Concomitant]
     Active Substance: DOXEPIN HYDROCHLORIDE
  7. BACLOFEN [Concomitant]
     Active Substance: BACLOFEN
  8. MELOXICAM [Concomitant]
     Active Substance: MELOXICAM
  9. LABETALOL HYDROCHLORIDE [Concomitant]
     Active Substance: LABETALOL HYDROCHLORIDE
  10. ARIPIPRAZOLE [Concomitant]
     Active Substance: ARIPIPRAZOLE
  11. ATORVASTATIN CALCIUM [Concomitant]
     Active Substance: ATORVASTATIN CALCIUM
  12. KETOROLAC TROMETHAMINE [Concomitant]
     Active Substance: KETOROLAC TROMETHAMINE
  13. FUROSEMIDE [Concomitant]
     Active Substance: FUROSEMIDE
  14. TELMISARTAN-HYDROCHLOROTHIAZID [Concomitant]
  15. OMEPRAZOLE [Concomitant]
     Active Substance: OMEPRAZOLE
  16. LEVOTHYROXINE SODIUM [Concomitant]
     Active Substance: LEVOTHYROXINE SODIUM
  17. HYDRALAZINE HCL [Concomitant]
     Active Substance: HYDRALAZINE HYDROCHLORIDE
  18. CITALOPRAM HYDROBROMIDE [Concomitant]
     Active Substance: CITALOPRAM HYDROBROMIDE
  19. LOSARTAN POTASSIUM [Concomitant]
     Active Substance: LOSARTAN POTASSIUM
  20. METOPROLOL SUCCINATE [Concomitant]
     Active Substance: METOPROLOL SUCCINATE
  21. ASPIRIN [Concomitant]
     Active Substance: ASPIRIN
  22. LATANOPROST [Concomitant]
     Active Substance: LATANOPROST

REACTIONS (1)
  - Eye pain [Unknown]
